FAERS Safety Report 9301412 (Version 1)
Quarter: 2013Q2

REPORT INFORMATION
  Report Type: Spontaneous
  Country: US (occurrence: US)
  Receive Date: 20130521
  Receipt Date: 20130521
  Transmission Date: 20140414
  Serious: Yes (Hospitalization, Other)
  Sender: FDA-Public Use
  Company Number: US-ABBOTT-13P-163-1090370-00

PATIENT
  Age: 74 Year
  Sex: Female
  Weight: 99.88 kg

DRUGS (5)
  1. NIASPAN (COATED) [Suspect]
     Indication: BLOOD CHOLESTEROL INCREASED
     Dates: start: 2009
  2. LOPRESSOR [Concomitant]
     Indication: MYOCARDIAL INFARCTION
  3. LISINOPRIL [Concomitant]
     Indication: MYOCARDIAL INFARCTION
  4. METFORMIN HYDROCHLORIDE [Concomitant]
     Indication: DIABETES MELLITUS
  5. CRESTOR [Concomitant]
     Indication: BLOOD CHOLESTEROL INCREASED

REACTIONS (9)
  - Facial bones fracture [Recovered/Resolved]
  - Wrist fracture [Recovered/Resolved]
  - Labyrinthitis [Recovered/Resolved]
  - Flushing [Recovered/Resolved]
  - Loss of consciousness [Recovered/Resolved]
  - Dizziness [Recovered/Resolved]
  - Flushing [Recovered/Resolved]
  - Defaecation urgency [Recovered/Resolved]
  - Flushing [Not Recovered/Not Resolved]
